FAERS Safety Report 14757256 (Version 3)
Quarter: 2020Q3

REPORT INFORMATION
  Report Type: Spontaneous
  Country: US (occurrence: US)
  Receive Date: 20180413
  Receipt Date: 20200715
  Transmission Date: 20201102
  Serious: Yes (Hospitalization, Other)
  Sender: FDA-Public Use
  Company Number: US-ASTRAZENECA-2018SE44588

PATIENT
  Age: 20911 Day
  Sex: Female
  Weight: 119.7 kg

DRUGS (48)
  1. FUROSEMIDE. [Concomitant]
     Active Substance: FUROSEMIDE
  2. VENTOLIN HFA [Concomitant]
     Active Substance: ALBUTEROL SULFATE
  3. LEVAQUIN [Concomitant]
     Active Substance: LEVOFLOXACIN
  4. MUCINEX [Concomitant]
     Active Substance: GUAIFENESIN
  5. CLONAZEPAM. [Concomitant]
     Active Substance: CLONAZEPAM
  6. MICONAZOLE. [Concomitant]
     Active Substance: MICONAZOLE
  7. KOMBIGLYZE XR [Suspect]
     Active Substance: METFORMIN HYDROCHLORIDE\SAXAGLIPTIN HYDROCHLORIDE
     Indication: DIABETES MELLITUS
     Dosage: 5?1000 MG UNKNOWN
     Route: 048
     Dates: start: 20111013
  8. KOMBIGLYZE XR [Suspect]
     Active Substance: METFORMIN HYDROCHLORIDE\SAXAGLIPTIN HYDROCHLORIDE
     Indication: DIABETES MELLITUS
     Dosage: 5?1000 MG UNKNOWN
     Route: 048
     Dates: start: 20140118
  9. POTASSIUM CHLORIDE. [Concomitant]
     Active Substance: POTASSIUM CHLORIDE
  10. ATENOLOL. [Concomitant]
     Active Substance: ATENOLOL
  11. PROTONIX [Concomitant]
     Active Substance: PANTOPRAZOLE SODIUM
  12. LOVENOX [Concomitant]
     Active Substance: ENOXAPARIN SODIUM
  13. CYMBALTA [Concomitant]
     Active Substance: DULOXETINE HYDROCHLORIDE
  14. CITALOPRAM [Concomitant]
     Active Substance: CITALOPRAM HYDROBROMIDE
  15. CLOTRIMAZOLE. [Concomitant]
     Active Substance: CLOTRIMAZOLE
  16. MAGNESIUM [Concomitant]
     Active Substance: MAGNESIUM
  17. AZITHROMYCIN ANHYDROUS. [Concomitant]
     Active Substance: AZITHROMYCIN ANHYDROUS
  18. SULFA [Concomitant]
     Active Substance: UNSPECIFIED INGREDIENT
  19. DIOVAN [Concomitant]
     Active Substance: VALSARTAN
  20. COMBIVENT [Concomitant]
     Active Substance: ALBUTEROL SULFATE\IPRATROPIUM BROMIDE
  21. CLINDAMYCIN. [Concomitant]
     Active Substance: CLINDAMYCIN
  22. IBUPROFEN. [Concomitant]
     Active Substance: IBUPROFEN
  23. BUMETANIDE. [Concomitant]
     Active Substance: BUMETANIDE
  24. KOMBIGLYZE XR [Suspect]
     Active Substance: METFORMIN HYDROCHLORIDE\SAXAGLIPTIN HYDROCHLORIDE
     Indication: DIABETES MELLITUS
     Dosage: 5?1000 MG DAILY UNKNOWN
     Route: 048
     Dates: start: 20110502
  25. ONGLYZA [Suspect]
     Active Substance: SAXAGLIPTIN HYDROCHLORIDE
     Route: 048
     Dates: start: 2012, end: 2013
  26. ACARBOSE. [Concomitant]
     Active Substance: ACARBOSE
  27. METOLAZONE. [Concomitant]
     Active Substance: METOLAZONE
  28. SPIRIVA [Concomitant]
     Active Substance: TIOTROPIUM BROMIDE MONOHYDRATE
  29. KENALOG [Concomitant]
     Active Substance: TRIAMCINOLONE ACETONIDE
  30. MEDROL [Concomitant]
     Active Substance: METHYLPREDNISOLONE
  31. BAYER [Concomitant]
     Active Substance: ASPIRIN
  32. URIC ACID [Concomitant]
     Active Substance: URIC ACID
  33. KOMBIGLYZE XR [Suspect]
     Active Substance: METFORMIN HYDROCHLORIDE\SAXAGLIPTIN HYDROCHLORIDE
     Indication: DIABETES MELLITUS
     Dosage: 5?1000 MG, DAILY UNKNOWN
     Route: 048
     Dates: start: 20200518
  34. KOMBIGLYZE XR [Suspect]
     Active Substance: METFORMIN HYDROCHLORIDE\SAXAGLIPTIN HYDROCHLORIDE
     Indication: DIABETES MELLITUS
     Dosage: 5?1000 MG UNKNOWN
     Route: 048
     Dates: start: 20130412
  35. TEKTURNA HCT [Concomitant]
     Active Substance: ALISKIREN HEMIFUMARATE\HYDROCHLOROTHIAZIDE
  36. OMEPRAZOLE. [Concomitant]
     Active Substance: OMEPRAZOLE
  37. BENGAY ARTHRITIS PAIN RELIEVING [Concomitant]
     Active Substance: MENTHOL\METHYL SALICYLATE
  38. VENTOLIN [Concomitant]
     Active Substance: ALBUTEROL SULFATE
  39. ROCEPHIN [Concomitant]
     Active Substance: CEFTRIAXONE SODIUM
  40. ALLOPURINOL. [Concomitant]
     Active Substance: ALLOPURINOL
  41. DULERA [Concomitant]
     Active Substance: FORMOTEROL FUMARATE DIHYDRATE\MOMETASONE FUROATE
  42. NICOTINE POLACRILEX [Concomitant]
     Active Substance: NICOTINE
  43. KOMBIGLYZE XR [Suspect]
     Active Substance: METFORMIN HYDROCHLORIDE\SAXAGLIPTIN HYDROCHLORIDE
     Indication: DIABETES MELLITUS
     Route: 048
     Dates: start: 2012, end: 2013
  44. KOMBIGLYZE XR [Suspect]
     Active Substance: METFORMIN HYDROCHLORIDE\SAXAGLIPTIN HYDROCHLORIDE
     Indication: DIABETES MELLITUS
     Dosage: 5.0MG UNKNOWN
     Route: 048
     Dates: start: 20110502, end: 20150320
  45. SYMBICORT [Concomitant]
     Active Substance: BUDESONIDE\FORMOTEROL FUMARATE DIHYDRATE
  46. CELEBREX [Concomitant]
     Active Substance: CELECOXIB
  47. GABAPENTIN. [Concomitant]
     Active Substance: GABAPENTIN
  48. GENTAMYCIN [Concomitant]
     Active Substance: GENTAMICIN

REACTIONS (4)
  - Hypertensive heart disease [Unknown]
  - Cardiovascular disorder [Unknown]
  - Chronic left ventricular failure [Unknown]
  - Cardiac failure acute [Unknown]

NARRATIVE: CASE EVENT DATE: 20130122
